FAERS Safety Report 13692616 (Version 1)
Quarter: 2017Q2

REPORT INFORMATION
  Report Type: Spontaneous
  Country: US (occurrence: US)
  Receive Date: 20170627
  Receipt Date: 20170627
  Transmission Date: 20170830
  Serious: No
  Sender: FDA-Public Use
  Company Number: US-PFIZER INC-2017275987

PATIENT
  Sex: Female

DRUGS (1)
  1. XELJANZ XR [Suspect]
     Active Substance: TOFACITINIB CITRATE
     Dosage: 11 MG, UNK

REACTIONS (8)
  - Arthralgia [Unknown]
  - Musculoskeletal stiffness [Unknown]
  - Dyspnoea exertional [Unknown]
  - Dry eye [Recovering/Resolving]
  - Pain [Recovering/Resolving]
  - Spinal pain [Unknown]
  - Fatigue [Unknown]
  - Arthropathy [Unknown]
